FAERS Safety Report 17370444 (Version 1)
Quarter: 2020Q1

REPORT INFORMATION
  Report Type: Spontaneous
  Country: US (occurrence: US)
  Receive Date: 20200205
  Receipt Date: 20200205
  Transmission Date: 20200409
  Serious: No
  Sender: FDA-Public Use
  Company Number: US-AUROBINDO-AUR-APL-2019-028964

PATIENT
  Age: 2 Year
  Sex: Female

DRUGS (1)
  1. CEFDINIR FOR ORAL SUSPENSION 125 MG/5 ML [Suspect]
     Active Substance: CEFDINIR
     Indication: INFECTION
     Dosage: 4 MILLILITER, ONCE A DAY
     Route: 065
     Dates: start: 20190506

REACTIONS (3)
  - Vomiting [Unknown]
  - Product taste abnormal [Unknown]
  - Product odour abnormal [Unknown]
